FAERS Safety Report 8430815-4 (Version None)
Quarter: 2012Q2

REPORT INFORMATION
  Report Type: 
  Country: None (occurrence: None)
  Receive Date: 20120612
  Receipt Date: 20120522
  Transmission Date: 20120825
  Serious: Yes (Other)
  Sender: FDA-Public Use
  Company Number: US-ROCHE-1072102

PATIENT
  Sex: Female
  Weight: 49.94 kg

DRUGS (9)
  1. ZYRTEC [Concomitant]
     Indication: ASTHMA
  2. ZYRTEC [Concomitant]
     Indication: URTICARIA
  3. CLARITIN [Concomitant]
     Indication: HYPERSENSITIVITY
     Dosage: 2007 APPROXIMATELY
     Route: 048
     Dates: start: 20070101
  4. CLARITIN [Concomitant]
     Indication: URTICARIA
  5. EVISTA [Concomitant]
     Indication: OSTEOPOROSIS
     Route: 048
     Dates: start: 20090101
  6. CLARITIN [Concomitant]
     Indication: ASTHMA
  7. ZYRTEC [Concomitant]
     Indication: HYPERSENSITIVITY
     Route: 048
     Dates: start: 20070101
  8. NASONEX [Concomitant]
     Indication: HYPERSENSITIVITY
     Route: 045
     Dates: start: 20110601
  9. XOLAIR [Suspect]
     Indication: ASTHMA
     Route: 058
     Dates: start: 20040101, end: 20120516

REACTIONS (3)
  - URTICARIA [None]
  - FEELING HOT [None]
  - PRURITUS [None]
